FAERS Safety Report 9275478 (Version 1)
Quarter: 2013Q1

REPORT INFORMATION
  Report Type: Spontaneous
  Country: US (occurrence: None)
  Receive Date: 20130322
  Receipt Date: 20130322
  Transmission Date: 20140127
  Serious: Yes (Other)
  Sender: FDA-Public Use
  Company Number: 54973 AE # 1283

PATIENT
  Age: 70 Year
  Sex: Female

DRUGS (3)
  1. HYLAND^S COMPLETE ALLERRGY 4 KIDS LIQUID [Suspect]
     Indication: MULTIPLE ALLERGIES
     Dates: start: 20130226
  2. PANTOPRAZOLE [Concomitant]
  3. PREVACID [Concomitant]

REACTIONS (3)
  - Choking [None]
  - Dyspnoea [None]
  - Foreign body [None]
